FAERS Safety Report 6038288-6 (Version None)
Quarter: 2009Q1

REPORT INFORMATION
  Report Type: 
  Country: None (occurrence: None)
  Receive Date: 20090115
  Receipt Date: 20090106
  Transmission Date: 20090719
  Serious: Yes (Hospitalization)
  Sender: FDA-Public Use
  Company Number: US-PFIZER INC-2008151181

PATIENT
  Sex: Female
  Weight: 75 kg

DRUGS (4)
  1. SOMAVERT [Suspect]
     Indication: PITUITARY TUMOUR
     Dosage: 30 MG, 1X/DAY
  2. COREG [Concomitant]
     Dosage: UNK
  3. ACETYLSALICYLIC ACID [Concomitant]
     Dosage: UNK
  4. BENAZEPRIL HYDROCHLORIDE [Concomitant]
     Dosage: UNK

REACTIONS (4)
  - BLOOD POTASSIUM INCREASED [None]
  - HIGH DENSITY LIPOPROTEIN INCREASED [None]
  - INCORRECT ROUTE OF DRUG ADMINISTRATION [None]
  - TROPONIN INCREASED [None]
